FAERS Safety Report 6122264-9 (Version None)
Quarter: 2009Q1

REPORT INFORMATION
  Report Type: 
  Country: None (occurrence: None)
  Receive Date: 20090316
  Receipt Date: 20090227
  Transmission Date: 20090719
  Serious: Yes (Other)
  Sender: FDA-Public Use
  Company Number: 2009000634

PATIENT
  Age: 81 Year
  Sex: Female

DRUGS (1)
  1. MACUGEN [Suspect]
     Dosage: (0.3 MG), INTRA-VITREAL

REACTIONS (2)
  - BLINDNESS TRANSIENT [None]
  - INTRAOCULAR PRESSURE INCREASED [None]
